FAERS Safety Report 6688013-0 (Version None)
Quarter: 2010Q2

REPORT INFORMATION
  Report Type: 
  Country: None (occurrence: None)
  Receive Date: 20100420
  Receipt Date: 20100413
  Transmission Date: 20101027
  Serious: Yes (Hospitalization, Other)
  Sender: FDA-Public Use
  Company Number: US-SANOFI-AVENTIS-2010SA021794

PATIENT
  Sex: Female
  Weight: 68.03 kg

DRUGS (4)
  1. PLAVIX [Suspect]
     Route: 048
     Dates: start: 20050101
  2. DIOVAN [Concomitant]
  3. POTASSIUM [Concomitant]
  4. NIFEDICAL [Concomitant]

REACTIONS (2)
  - DRUG INEFFECTIVE [None]
  - OVARIAN CYST RUPTURED [None]
